FAERS Safety Report 8946399 (Version 3)
Quarter: 2013Q3

REPORT INFORMATION
  Report Type: Spontaneous
  Country: US (occurrence: US)
  Receive Date: 20121204
  Receipt Date: 20130927
  Transmission Date: 20140515
  Serious: Yes (Other)
  Sender: FDA-Public Use
  Company Number: US-AMGEN-USASP2012077600

PATIENT
  Age: 30 Year
  Sex: Female

DRUGS (10)
  1. ENBREL [Suspect]
     Indication: RHEUMATOID ARTHRITIS
     Dosage: 25 MG, 2 TIMES/WK
     Route: 058
     Dates: start: 20100813
  2. ENBREL [Suspect]
     Indication: ANKYLOSING SPONDYLITIS
  3. INFLUENZA VACCINE [Suspect]
     Indication: PRODUCT USED FOR UNKNOWN INDICATION
     Dosage: UNK
     Route: 065
  4. PRENATAL                           /00231801/ [Concomitant]
     Dosage: UNK UNK, QD
     Route: 048
  5. FOLIC ACID [Concomitant]
     Dosage: UNK UNK, QD
     Route: 048
  6. DOXYLAMINE [Concomitant]
     Dosage: QD
     Route: 048
     Dates: start: 20130101
  7. CALCIUM [Concomitant]
     Dosage: QD
     Route: 048
  8. MAGNESIUM [Concomitant]
     Dosage: QD
     Route: 048
  9. VITAMIN D                          /00107901/ [Concomitant]
     Dosage: QD
     Route: 048
  10. PROBIOTIC                          /06395501/ [Concomitant]
     Dosage: QD
     Route: 048

REACTIONS (4)
  - Premature delivery [Unknown]
  - Pre-eclampsia [Unknown]
  - Caesarean section [Unknown]
  - Rheumatoid arthritis [Unknown]
